FAERS Safety Report 25851316 (Version 1)
Quarter: 2025Q3

REPORT INFORMATION
  Report Type: Spontaneous
  Country: US (occurrence: US)
  Receive Date: 20250926
  Receipt Date: 20250926
  Transmission Date: 20251020
  Serious: Yes (Other)
  Sender: TEVA
  Company Number: US-TEVA-VS-3375233

PATIENT
  Age: 44 Year
  Sex: Male

DRUGS (2)
  1. MONTELUKAST [Suspect]
     Active Substance: MONTELUKAST
     Indication: Asthma
     Route: 065
  2. THEOPHYLLINE [Suspect]
     Active Substance: THEOPHYLLINE
     Indication: Asthma
     Route: 065

REACTIONS (5)
  - Hypereosinophilic syndrome [Unknown]
  - Eosinophilia [Unknown]
  - Inflammatory bowel disease [Unknown]
  - Weight decreased [Unknown]
  - Rectal haemorrhage [Unknown]
